FAERS Safety Report 5079922-7 (Version None)
Quarter: 2006Q3

REPORT INFORMATION
  Report Type: 
  Country: None (occurrence: None)
  Receive Date: 20060815
  Receipt Date: 20060712
  Transmission Date: 20061208
  Serious: Yes (Life-Threatening, Hospitalization, Other)
  Sender: FDA-Public Use
  Company Number: GB-BAYER-200610833BNE

PATIENT
  Age: 63 Year
  Sex: Male
  Weight: 83 kg

DRUGS (7)
  1. FLUCONAZOLE [Suspect]
     Dosage: TOTAL DAILY DOSE: 100 MG
     Dates: start: 20051129
  2. CLOTRIMAZOLE [Suspect]
     Dates: start: 20051117
  3. CLOTRIMAZOLE [Suspect]
     Dates: start: 20051129
  4. FLUCLOXACILLIN [Suspect]
     Dosage: TOTAL DAILY DOSE: 1000 MG
     Dates: start: 20051129
  5. PHYLLOCONTIN [Concomitant]
     Dates: start: 19960101
  6. LANSOPRAZOLE [Concomitant]
     Dates: start: 20030101
  7. ALLOPURINOL [Concomitant]
     Dates: start: 20030101

REACTIONS (12)
  - ANAPHYLACTIC SHOCK [None]
  - BLOOD POTASSIUM DECREASED [None]
  - CARDIAC ARREST [None]
  - CONVULSION [None]
  - DRUG ADMINISTRATION ERROR [None]
  - DRUG HYPERSENSITIVITY [None]
  - DRUG PRESCRIBING ERROR [None]
  - DYSPNOEA [None]
  - ERYTHEMA [None]
  - PRURITUS [None]
  - RASH MACULAR [None]
  - SWELLING FACE [None]
